FAERS Safety Report 6373067-1 (Version None)
Quarter: 2009Q3

REPORT INFORMATION
  Report Type: 
  Country: None (occurrence: None)
  Receive Date: 20090924
  Receipt Date: 20090205
  Transmission Date: 20100115
  Serious: Yes (Other)
  Sender: FDA-Public Use
  Company Number: US-ASTRAZENECA-2009UW03464

PATIENT
  Sex: Female

DRUGS (4)
  1. SEROQUEL [Suspect]
     Route: 048
  2. VALIUM [Concomitant]
     Route: 048
  3. VICODIN [Concomitant]
     Dosage: FOUR TIMES A DAY
     Route: 048
  4. LEXAPRO [Concomitant]
     Dosage: TWO TIMES A DAY
     Route: 048

REACTIONS (1)
  - HYPOTENSION [None]
